FAERS Safety Report 4697451-7 (Version None)
Quarter: 2005Q2

REPORT INFORMATION
  Report Type: 
  Country: None (occurrence: None)
  Receive Date: 20050621
  Receipt Date: 20050607
  Transmission Date: 20051028
  Serious: Yes (Hospitalization, Other)
  Sender: FDA-Public Use
  Company Number: US_991030371

PATIENT
  Age: 78 Year
  Sex: Female
  Weight: 55 kg

DRUGS (8)
  1. HUMALOG [Suspect]
     Indication: DIABETES MELLITUS
     Dosage: 4 U/3 DAY
     Dates: start: 19960101
  2. HUMULIN N [Suspect]
     Indication: DIABETES MELLITUS
     Dosage: 10 U/DAY
     Dates: end: 19990101
  3. HUMULIN U [Suspect]
     Indication: DIABETES MELLITUS
     Dosage: 5 U/1 AT BEDTIME
     Dates: start: 19990101
  4. HUMULIN R [Suspect]
     Indication: DIABETES MELLITUS
     Dates: end: 19960101
  5. FORTEO [Suspect]
     Indication: OSTEOPOROSIS
     Dates: start: 20050602
  6. SYNTHROID [Concomitant]
  7. LANTUS [Concomitant]
  8. FOSAMAX [Concomitant]

REACTIONS (6)
  - AORTIC VALVE REPLACEMENT [None]
  - BLOOD GLUCOSE INCREASED [None]
  - BONE DENSITY DECREASED [None]
  - DRUG INEFFECTIVE [None]
  - INJECTION SITE HAEMORRHAGE [None]
  - PHARMACEUTICAL PRODUCT COMPLAINT [None]
